FAERS Safety Report 25084299 (Version 1)
Quarter: 2025Q1

REPORT INFORMATION
  Report Type: Spontaneous
  Country: AU (occurrence: AU)
  Receive Date: 20250317
  Receipt Date: 20250317
  Transmission Date: 20250409
  Serious: Yes (Other)
  Sender: SANDOZ
  Company Number: AU-SANDOZ-SDZ2024AU032055

PATIENT

DRUGS (4)
  1. ALCOHOL [Suspect]
     Active Substance: ALCOHOL
     Indication: Product used for unknown indication
     Route: 065
  2. OXYBUTYNIN [Suspect]
     Active Substance: OXYBUTYNIN
     Indication: Product used for unknown indication
     Route: 065
  3. RIVASTIGMINE [Suspect]
     Active Substance: RIVASTIGMINE
     Indication: Delirium
     Route: 065
  4. PHYSOSTIGMINE [Concomitant]
     Active Substance: PHYSOSTIGMINE
     Indication: Delirium
     Route: 065

REACTIONS (2)
  - Seizure [Recovered/Resolved]
  - Off label use [Unknown]
